FAERS Safety Report 6427150-2 (Version None)
Quarter: 2009Q4

REPORT INFORMATION
  Report Type: 
  Country: None (occurrence: None)
  Receive Date: 20091103
  Receipt Date: 20091103
  Transmission Date: 20100525
  Serious: No
  Sender: FDA-Public Use
  Company Number: None

PATIENT
  Age: 63 Year
  Sex: Male
  Weight: 75 kg

DRUGS (1)
  1. TIOTROPIUM [Suspect]
     Dosage: 18 MCG EVERY DAY INHALE
     Route: 055
     Dates: start: 20090529, end: 20090731

REACTIONS (1)
  - OROPHARYNGEAL PAIN [None]
